FAERS Safety Report 8549433 (Version 4)
Quarter: 2014Q4

REPORT INFORMATION
  Report Type: Spontaneous
  Country: JP (occurrence: JP)
  Receive Date: 20120507
  Receipt Date: 20141024
  Transmission Date: 20150529
  Serious: Yes (Death, Life-Threatening, Disabling)
  Sender: FDA-Public Use
  Company Number: JP-ROCHE-1063746

PATIENT
  Age: 71 Year
  Sex: Male
  Weight: 48 kg

DRUGS (11)
  1. ALBUMIN TANNATE [Concomitant]
     Active Substance: ALBUMIN BOVINE\TANNIC ACID
     Route: 048
     Dates: end: 20120415
  2. CARBOPLATIN. [Suspect]
     Active Substance: CARBOPLATIN
     Indication: LUNG ADENOCARCINOMA RECURRENT
     Dosage: DOSAGE: 5 AUC A DAY
     Route: 041
     Dates: start: 20120313, end: 20120313
  3. ALIMTA [Suspect]
     Active Substance: PEMETREXED DISODIUM
     Indication: LUNG ADENOCARCINOMA RECURRENT
     Route: 041
     Dates: start: 20120313, end: 20120313
  4. NEUER [Concomitant]
     Active Substance: CETRAXATE HYDROCHLORIDE
     Route: 048
     Dates: end: 20120415
  5. MEDICON (DEXTROMETHORPHAN HYDROBROMIDE) [Concomitant]
     Active Substance: DEXTROMETHORPHAN HYDROBROMIDE
     Route: 048
     Dates: end: 20120415
  6. PANVITAN [Concomitant]
     Indication: PROPHYLAXIS
     Route: 048
     Dates: start: 20120306, end: 20120415
  7. EVIPROSTAT [Concomitant]
     Active Substance: CHIMAPHILA UMBELLATA\MANGANESE CHLORIDE\POPULUS TREMULOIDES\SODIUM TAUROCHOLATE
     Route: 048
     Dates: end: 20120415
  8. AVASTIN [Suspect]
     Active Substance: BEVACIZUMAB
     Indication: LUNG NEOPLASM MALIGNANT
     Route: 041
     Dates: start: 20120313, end: 20120313
  9. URSO [Concomitant]
     Active Substance: URSODIOL
     Route: 048
     Dates: end: 20120415
  10. SOL-MELCORT [Suspect]
     Active Substance: METHYLPREDNISOLONE SODIUM SUCCINATE
     Indication: LEUKOENCEPHALOPATHY
     Dosage: DOSAGE IS UNCERTAIN.
     Route: 041
     Dates: start: 20120426, end: 2012
  11. FLIVAS [Concomitant]
     Active Substance: NAFTOPIDIL
     Route: 048
     Dates: end: 20120415

REACTIONS (8)
  - Vomiting [Unknown]
  - Neutrophil count decreased [Unknown]
  - Pulmonary embolism [Recovering/Resolving]
  - Decreased appetite [Unknown]
  - White blood cell count decreased [Unknown]
  - Leukoencephalopathy [Not Recovered/Not Resolved]
  - Pyrexia [Unknown]
  - Pneumonia aspiration [Fatal]

NARRATIVE: CASE EVENT DATE: 20120316
